FAERS Safety Report 4979935-7 (Version None)
Quarter: 2006Q2

REPORT INFORMATION
  Report Type: 
  Country: None (occurrence: None)
  Receive Date: 20060421
  Receipt Date: 20060410
  Transmission Date: 20061013
  Serious: Yes (Hospitalization)
  Sender: FDA-Public Use
  Company Number: US-MERCK-0604USA01894

PATIENT
  Age: 35 Year
  Sex: Female

DRUGS (1)
  1. VIOXX [Suspect]
     Route: 048

REACTIONS (9)
  - ASCITES [None]
  - AXILLARY MASS [None]
  - HYPERLIPIDAEMIA [None]
  - NECK MASS [None]
  - PALPITATIONS [None]
  - PNEUMONIA [None]
  - RENAL FAILURE [None]
  - TACHYCARDIA [None]
  - UTERINE LEIOMYOMA [None]
